FAERS Safety Report 9698580 (Version 1)
Quarter: 2013Q4

REPORT INFORMATION
  Report Type: Spontaneous
  Country: AU (occurrence: AU)
  Receive Date: 20131120
  Receipt Date: 20131120
  Transmission Date: 20140711
  Serious: Yes (Hospitalization)
  Sender: FDA-Public Use
  Company Number: AU-GLAXOSMITHKLINE-B0942170A

PATIENT
  Age: 26 Year
  Sex: Female

DRUGS (4)
  1. SERTRALINE [Suspect]
     Indication: DEPRESSION
     Dosage: 50MG PER DAY
     Route: 065
  2. RANITIDINE [Suspect]
     Indication: GASTROOESOPHAGEAL REFLUX DISEASE
     Route: 065
  3. METOCLOPRAMIDE [Suspect]
     Indication: NAUSEA
     Route: 065
  4. DESVENLAFAXINE SUCCINATE [Concomitant]
     Dosage: 50MG PER DAY

REACTIONS (12)
  - Liver injury [Recovered/Resolved]
  - Drug-induced liver injury [Unknown]
  - Nausea [Unknown]
  - Vomiting [Unknown]
  - Malaise [Unknown]
  - Chromaturia [Unknown]
  - Hepatitis [Unknown]
  - Transaminases increased [Recovered/Resolved]
  - Pruritus [Unknown]
  - Epigastric discomfort [Unknown]
  - Live birth [Unknown]
  - Exposure during pregnancy [Unknown]
